FAERS Safety Report 19091995 (Version 1)
Quarter: 2021Q2

REPORT INFORMATION
  Report Type: Report from Study
  Country: FR (occurrence: FR)
  Receive Date: 20210405
  Receipt Date: 20210405
  Transmission Date: 20210717
  Serious: Yes (Hospitalization, Other)
  Sender: FDA-Public Use
  Company Number: FR-BRISTOL-MYERS SQUIBB COMPANY-BMS-2021-030850

PATIENT
  Age: 69 Year
  Sex: Female
  Weight: 87 kg

DRUGS (5)
  1. LIPANTHYL [Concomitant]
     Active Substance: FENOFIBRATE
     Indication: BLOOD CHOLESTEROL ABNORMAL
     Dosage: 145 MILLIGRAM
     Route: 048
     Dates: start: 2008
  2. KENZEN [CANDESARTAN CILEXETIL] [Concomitant]
     Active Substance: CANDESARTAN CILEXETIL
     Indication: HYPERTENSION
     Dosage: 8 MILLIGRAM
     Route: 048
     Dates: start: 2006, end: 201703
  3. SUTENT [Suspect]
     Active Substance: SUNITINIB MALATE
     Indication: METASTATIC RENAL CELL CARCINOMA
     Dosage: 50 MG, DAILY (4 WEEKS ON 2 WEEKS OFF)
     Route: 065
     Dates: start: 20170228, end: 20170730
  4. NIVOLUMAB [Suspect]
     Active Substance: NIVOLUMAB
     Indication: PRODUCT USED FOR UNKNOWN INDICATION
     Dosage: 3 MILLIGRAM/KILOGRAM, Q4WK
     Route: 065
     Dates: start: 201711
  5. INEXIUM [ESOMEPRAZOLE MAGNESIUM] [Concomitant]
     Active Substance: ESOMEPRAZOLE MAGNESIUM
     Indication: GASTRIC DISORDER
     Dosage: 20 MG, UNK
     Route: 048
     Dates: start: 2015

REACTIONS (1)
  - Intracranial pressure increased [Recovered/Resolved]

NARRATIVE: CASE EVENT DATE: 20181019
